FAERS Safety Report 17562750 (Version 2)
Quarter: 2020Q2

REPORT INFORMATION
  Report Type: Report from Study
  Country: US (occurrence: US)
  Receive Date: 20200319
  Receipt Date: 20200409
  Transmission Date: 20200713
  Serious: Yes (Hospitalization)
  Sender: FDA-Public Use
  Company Number: US-ACTELION-A-NJ2020-203092

PATIENT
  Age: 1 Year
  Sex: Male

DRUGS (8)
  1. SILDENAFIL. [Concomitant]
     Active Substance: SILDENAFIL
     Dosage: 10 MG, Q6HRS
     Dates: start: 20190606
  2. TAMIFLU [Concomitant]
     Active Substance: OSELTAMIVIR PHOSPHATE
     Dosage: 30 MG, BID
     Dates: start: 20200214, end: 20200215
  3. TRACLEER [Suspect]
     Active Substance: BOSENTAN
     Indication: PULMONARY HYPERTENSION
     Dosage: 12 MG, BID
     Route: 048
     Dates: start: 20190616
  4. ENALAPRIL [Concomitant]
     Active Substance: ENALAPRIL
     Dosage: 1.5 MG, BID
     Dates: start: 20190609
  5. DIGOXIN. [Concomitant]
     Active Substance: DIGOXIN
     Dosage: 5 MG, BID
     Dates: start: 20190609
  6. ASPIRIN. [Concomitant]
     Active Substance: ASPIRIN
     Dosage: 81 MG, QD
     Dates: start: 20190601
  7. BUDESONIDE. [Concomitant]
     Active Substance: BUDESONIDE
     Dosage: 0.5 MG, BID
     Dates: start: 20190701
  8. LASIX [Concomitant]
     Active Substance: FUROSEMIDE
     Dosage: 10 MG, BID
     Dates: start: 20190107

REACTIONS (1)
  - Influenza [Recovered/Resolved]

NARRATIVE: CASE EVENT DATE: 20200210
